FAERS Safety Report 9284688 (Version 1)
Quarter: 2013Q2

REPORT INFORMATION
  Report Type: Spontaneous
  Country: MY (occurrence: MY)
  Receive Date: 20130513
  Receipt Date: 20130513
  Transmission Date: 20140414
  Serious: Yes (Life-Threatening)
  Sender: FDA-Public Use
  Company Number: MY-RANBAXY-2013R3-68617

PATIENT
  Age: 54 Year
  Sex: Female

DRUGS (2)
  1. CLAVAM [Suspect]
     Indication: ACUTE TONSILLITIS
     Dosage: 1G, DAILY
     Route: 042
  2. ALLOPURINOL [Concomitant]
     Indication: PRODUCT USED FOR UNKNOWN INDICATION
     Dosage: UNK
     Route: 065

REACTIONS (1)
  - Toxic epidermal necrolysis [Not Recovered/Not Resolved]
